FAERS Safety Report 12186139 (Version 1)
Quarter: 2016Q1

REPORT INFORMATION
  Report Type: Spontaneous
  Country: CN (occurrence: CN)
  Receive Date: 20160317
  Receipt Date: 20160317
  Transmission Date: 20160526
  Serious: Yes (Other)
  Sender: FDA-Public Use
  Company Number: CN-AMGEN-CHNSP2016033370

PATIENT

DRUGS (1)
  1. REGPARA [Suspect]
     Active Substance: CINACALCET HYDROCHLORIDE
     Indication: PRODUCT USED FOR UNKNOWN INDICATION
     Dosage: UNK
     Route: 065

REACTIONS (16)
  - Electrocardiogram QT prolonged [Unknown]
  - Dry mouth [Unknown]
  - Neutrophil count decreased [Unknown]
  - Nausea [Unknown]
  - Vomiting [Unknown]
  - Hypocalcaemia [Unknown]
  - Chest discomfort [Unknown]
  - Tremor [Unknown]
  - Hypoaesthesia [Unknown]
  - Palpitations [Unknown]
  - White blood cell count decreased [Unknown]
  - Haemoglobin decreased [Unknown]
  - Fatigue [Unknown]
  - Myalgia [Unknown]
  - Dizziness [Unknown]
  - Muscle spasms [Unknown]
